FAERS Safety Report 6410258-5 (Version None)
Quarter: 2009Q4

REPORT INFORMATION
  Report Type: 
  Country: None (occurrence: None)
  Receive Date: 20091022
  Receipt Date: 20091020
  Transmission Date: 20100525
  Serious: Yes (Other)
  Sender: FDA-Public Use
  Company Number: A0803520A

PATIENT
  Age: 58 Year
  Sex: Female

DRUGS (15)
  1. FLOVENT [Suspect]
     Indication: ASTHMA
     Dosage: 1PUFF TWICE PER DAY
     Route: 055
  2. ADVAIR DISKUS 100/50 [Suspect]
     Indication: DRUG USE FOR UNKNOWN INDICATION
  3. FLUTICASONE PROPIONATE [Suspect]
     Indication: DRUG USE FOR UNKNOWN INDICATION
  4. PROVENTIL-HFA [Concomitant]
  5. LOTREL [Concomitant]
  6. BENAZAPRIL [Concomitant]
  7. LORATADINE [Concomitant]
  8. PREMPRO [Concomitant]
  9. CALCIUM [Concomitant]
  10. VITAMIN D [Concomitant]
  11. GLUCOSAMINE WITH CHONDROITIN [Concomitant]
  12. VITAMINS [Concomitant]
  13. UNSPECIFIED MEDICATION [Concomitant]
  14. COENZYME Q10 [Concomitant]
  15. FISH OIL [Concomitant]

REACTIONS (8)
  - ASTHMA [None]
  - CONTUSION [None]
  - DRUG INEFFECTIVE [None]
  - INHALATION THERAPY [None]
  - LARYNGITIS [None]
  - SKIN FRAGILITY [None]
  - SKIN LACERATION [None]
  - UPPER RESPIRATORY TRACT CONGESTION [None]
